FAERS Safety Report 14563645 (Version 2)
Quarter: 2018Q1

REPORT INFORMATION
  Report Type: Spontaneous
  Country: US (occurrence: US)
  Receive Date: 20180222
  Receipt Date: 20180316
  Transmission Date: 20180509
  Serious: Yes (Other)
  Sender: FDA-Public Use
  Company Number: US-NAPPMUNDI-USA-2018-0142763

PATIENT
  Sex: Female

DRUGS (2)
  1. OXYCONTIN [Suspect]
     Active Substance: OXYCODONE HYDROCHLORIDE
     Dosage: UNK
     Route: 048
  2. OXYCONTIN [Suspect]
     Active Substance: OXYCODONE HYDROCHLORIDE
     Indication: PAIN
     Dosage: 40 MG, QID
     Route: 048

REACTIONS (31)
  - Hernia hiatus repair [Unknown]
  - Asthma [Unknown]
  - Exostosis [Unknown]
  - Malaise [Unknown]
  - Gastrointestinal surgery [Unknown]
  - Large intestine operation [Unknown]
  - Myocardial infarction [Unknown]
  - Coagulopathy [Unknown]
  - Colectomy [Unknown]
  - Cholecystectomy [Unknown]
  - Chronic obstructive pulmonary disease [Unknown]
  - Arterial disorder [Unknown]
  - Pulmonary embolism [Unknown]
  - Intervertebral disc protrusion [Unknown]
  - Dyspnoea [Unknown]
  - Diarrhoea [Unknown]
  - Drug effect decreased [Unknown]
  - Large intestinal haemorrhage [Unknown]
  - Unevaluable event [Unknown]
  - Cardiac operation [Unknown]
  - Hysterectomy [Unknown]
  - Arthritis [Unknown]
  - Weight decreased [Unknown]
  - Frequent bowel movements [Unknown]
  - Off label use [Unknown]
  - Emphysema [Unknown]
  - Electrolyte imbalance [Unknown]
  - Atrial fibrillation [Unknown]
  - Nerve compression [Unknown]
  - Protein C deficiency [Unknown]
  - Erythema [Unknown]
